FAERS Safety Report 5768896-9 (Version None)
Quarter: 2008Q2

REPORT INFORMATION
  Report Type: 
  Country: None (occurrence: None)
  Receive Date: 20080612
  Receipt Date: 20080313
  Transmission Date: 20081010
  Serious: No
  Sender: FDA-Public Use
  Company Number: US-ABBOTT-08P-163-0442619-00

PATIENT
  Sex: Female
  Weight: 68.1 kg

DRUGS (6)
  1. HUMIRA [Suspect]
     Indication: CROHN'S DISEASE
     Route: 058
     Dates: start: 20080226
  2. HEPARIN-FRACTION, SODIUM SALT [Concomitant]
     Indication: THROMBOSIS
     Route: 058
     Dates: start: 20080201, end: 20080314
  3. MESALAMINE [Concomitant]
     Indication: COLITIS
  4. ASPIRIN [Concomitant]
     Indication: THROMBOSIS
  5. ASPIRIN [Concomitant]
     Indication: PROPHYLAXIS
  6. CYANOCOBALAMIN [Concomitant]
     Indication: DRUG USE FOR UNKNOWN INDICATION
     Route: 048

REACTIONS (2)
  - INJECTION SITE ERYTHEMA [None]
  - INJECTION SITE PRURITUS [None]
